FAERS Safety Report 19063522 (Version 3)
Quarter: 2022Q2

REPORT INFORMATION
  Report Type: Report from Study
  Country: BR (occurrence: BR)
  Receive Date: 20210326
  Receipt Date: 20220605
  Transmission Date: 20220720
  Serious: Yes (Hospitalization)
  Sender: FDA-Public Use
  Company Number: BR-BIOGEN-2021BI00992502

PATIENT
  Sex: Female
  Weight: 78 kg

DRUGS (10)
  1. TYSABRI [Suspect]
     Active Substance: NATALIZUMAB
     Indication: Multiple sclerosis
     Route: 042
     Dates: start: 20150805
  2. TYSABRI [Suspect]
     Active Substance: NATALIZUMAB
     Route: 042
     Dates: start: 2019
  3. COGNITUS [Concomitant]
     Indication: Multiple sclerosis
     Route: 065
  4. COGNITUS [Concomitant]
     Dosage: 2 TABLETS
     Route: 048
     Dates: start: 2016
  5. CYANOCOBALAMIN\PYRIDOXINE HYDROCHLORIDE\THIAMINE [Concomitant]
     Active Substance: CYANOCOBALAMIN\PYRIDOXINE HYDROCHLORIDE\THIAMINE
     Indication: Product used for unknown indication
     Route: 065
  6. SINTOCALMY [Concomitant]
     Indication: Depression
     Route: 065
  7. Xantinon [Concomitant]
     Indication: Abdominal discomfort
     Route: 065
     Dates: start: 2012
  8. CHOLECALCIFEROL [Concomitant]
     Active Substance: CHOLECALCIFEROL
     Indication: Multiple sclerosis
     Route: 048
     Dates: start: 2018
  9. LAMOTRIGINE [Concomitant]
     Active Substance: LAMOTRIGINE
     Indication: Depression
     Dosage: 2 TABLETS
     Route: 065
     Dates: start: 2012
  10. PROZAC [Concomitant]
     Active Substance: FLUOXETINE HYDROCHLORIDE
     Indication: Depression
     Dosage: 2 TABLETS
     Route: 048
     Dates: start: 2011

REACTIONS (5)
  - Nephrolithiasis [Recovered/Resolved]
  - Kidney infection [Unknown]
  - Nervousness [Not Recovered/Not Resolved]
  - Memory impairment [Not Recovered/Not Resolved]
  - Depression [Unknown]

NARRATIVE: CASE EVENT DATE: 20200101
